FAERS Safety Report 22600796 (Version 1)
Quarter: 2023Q2

REPORT INFORMATION
  Report Type: Spontaneous
  Country: IT (occurrence: IT)
  Receive Date: 20230614
  Receipt Date: 20230614
  Transmission Date: 20230721
  Serious: Yes (Other)
  Sender: FDA-Public Use
  Company Number: IT-SUN PHARMACEUTICAL INDUSTRIES LTD-2023RR-394189

PATIENT
  Age: 41 Year
  Sex: Female

DRUGS (6)
  1. IMATINIB [Suspect]
     Active Substance: IMATINIB
     Indication: Soft tissue sarcoma
     Dosage: UNK
     Route: 065
  2. TRABECTEDIN [Suspect]
     Active Substance: TRABECTEDIN
     Indication: Soft tissue sarcoma
     Dosage: 1.5 MG/MQ IN 24 HOURS INFUSION
     Route: 065
  3. PAZOPANIB [Suspect]
     Active Substance: PAZOPANIB
     Indication: Soft tissue sarcoma
     Dosage: 800 MILLIGRAM/SQ. METER
     Route: 065
     Dates: start: 201711
  4. DOXORUBICIN [Suspect]
     Active Substance: DOXORUBICIN
     Indication: Soft tissue sarcoma
     Dosage: 75 MILLIGRAM (ON DAY 1)
     Route: 042
     Dates: start: 201709
  5. GEMCITABINE [Suspect]
     Active Substance: GEMCITABINE
     Indication: Soft tissue sarcoma
     Dosage: 1000 MG/MQ (DAYS 1?8 EVERY 3 WEEKS)
     Route: 065
  6. OLARATUMAB [Suspect]
     Active Substance: OLARATUMAB
     Indication: Soft tissue sarcoma
     Dosage: 15 MILLIGRAM/KILOGRAM (DAY 1 TO 8)
     Route: 042
     Dates: start: 201709

REACTIONS (4)
  - Disease progression [Unknown]
  - Off label use [Unknown]
  - Skin toxicity [Unknown]
  - Therapeutic product effect incomplete [Unknown]
